FAERS Safety Report 8104888-2 (Version None)
Quarter: 2012Q1

REPORT INFORMATION
  Report Type: 
  Country: None (occurrence: None)
  Receive Date: 20120201
  Receipt Date: 20120131
  Transmission Date: 20120608
  Serious: Yes (Hospitalization)
  Sender: FDA-Public Use
  Company Number: US-GLAXOSMITHKLINE-A0915673A

PATIENT
  Age: 52 Year
  Sex: Female
  Weight: 75 kg

DRUGS (10)
  1. AVAPRO [Concomitant]
  2. HYDROSINE [Concomitant]
  3. LISINOPRIL [Concomitant]
  4. AVANDIA [Suspect]
     Indication: DIABETES MELLITUS
     Dosage: 8MG PER DAY
     Route: 048
     Dates: start: 19991201, end: 20090101
  5. ZETIA [Concomitant]
  6. TRANXENE [Concomitant]
  7. GLUCOPHAGE [Concomitant]
  8. TENORMIN [Concomitant]
  9. LIPITOR [Concomitant]
  10. NEXIUM [Concomitant]

REACTIONS (17)
  - CAROTID ARTERY ANEURYSM [None]
  - CARDIAC ASSISTANCE DEVICE USER [None]
  - HYPERTENSION [None]
  - PAIN [None]
  - HYPOXIA [None]
  - ARRHYTHMIA [None]
  - BACK PAIN [None]
  - ELECTROCARDIOGRAM ABNORMAL [None]
  - MUSCULAR WEAKNESS [None]
  - MOVEMENT DISORDER [None]
  - VISION BLURRED [None]
  - HYPERLIPIDAEMIA [None]
  - ANGIOPLASTY [None]
  - IMPLANTABLE DEFIBRILLATOR INSERTION [None]
  - ANAEMIA [None]
  - CARDIAC FAILURE CONGESTIVE [None]
  - CORONARY ARTERY DISEASE [None]
